FAERS Safety Report 16381224 (Version 2)
Quarter: 2019Q2

REPORT INFORMATION
  Report Type: Spontaneous
  Country: FR (occurrence: FR)
  Receive Date: 20190603
  Receipt Date: 20190619
  Transmission Date: 20190711
  Serious: Yes (Congenital Anomaly)
  Sender: FDA-Public Use
  Company Number: FR-UCBSA-2019022838

PATIENT
  Age: 1 Day
  Sex: Male

DRUGS (4)
  1. VIMPAT [Suspect]
     Active Substance: LACOSAMIDE
     Indication: EPILEPSY
     Dosage: 50 MILLIGRAM, 2X/DAY (BID)
     Route: 064
     Dates: start: 2018
  2. URBANYL [Suspect]
     Active Substance: CLOBAZAM
     Indication: EPILEPSY
     Dosage: 10 MILLIGRAM, 3X/DAY (TID)
     Route: 064
     Dates: start: 2018
  3. KEPPRA [Suspect]
     Active Substance: LEVETIRACETAM
     Indication: EPILEPSY
     Dosage: 750 MILLIGRAM, 3X/DAY (TID)
     Route: 064
     Dates: start: 2018
  4. LAMICTAL [Suspect]
     Active Substance: LAMOTRIGINE
     Indication: EPILEPSY
     Dosage: 200 MILLIGRAM, 3X/DAY (TID)
     Route: 064
     Dates: start: 2018

REACTIONS (3)
  - Hypotonia [Not Recovered/Not Resolved]
  - Cryptorchism [Not Recovered/Not Resolved]
  - Retrognathia [Not Recovered/Not Resolved]

NARRATIVE: CASE EVENT DATE: 2019
